FAERS Safety Report 4744421-6 (Version None)
Quarter: 2005Q3

REPORT INFORMATION
  Report Type: 
  Country: None (occurrence: None)
  Receive Date: 20050811
  Receipt Date: 20050811
  Transmission Date: 20060218
  Serious: Yes (Other)
  Sender: FDA-Public Use
  Company Number: None

PATIENT
  Age: 25 Year
  Sex: Male
  Weight: 74.3899 kg

DRUGS (1)
  1. DAYPRO [Suspect]
     Indication: ANGINA PECTORIS
     Dosage: ONE PO BID
     Route: 048

REACTIONS (1)
  - CHEST PAIN [None]
